FAERS Safety Report 4381417-0 (Version None)
Quarter: 2004Q2

REPORT INFORMATION
  Report Type: 
  Country: None (occurrence: None)
  Receive Date: 20040617
  Receipt Date: 20040617
  Transmission Date: 20050107
  Serious: Yes (Other)
  Sender: FDA-Public Use
  Company Number: None

PATIENT
  Sex: Male
  Weight: 70 kg

DRUGS (1)
  1. METOCLOPRAMIDE [Suspect]
     Indication: NAUSEA
     Dosage: 10MG ONCE INTRAVENOUS
     Route: 042
     Dates: start: 20040616, end: 20040616

REACTIONS (3)
  - AGITATION [None]
  - HYPERHIDROSIS [None]
  - HYPERREFLEXIA [None]
